FAERS Safety Report 9562408 (Version 2)
Quarter: 2013Q4

REPORT INFORMATION
  Report Type: Spontaneous
  Country: GB (occurrence: BE)
  Receive Date: 20130927
  Receipt Date: 20131002
  Transmission Date: 20140711
  Serious: No
  Sender: FDA-Public Use
  Company Number: GB-009507513-1309BEL013248

PATIENT
  Sex: Female

DRUGS (10)
  1. PUREGON [Suspect]
     Indication: IN VITRO FERTILISATION
  2. PUREGON [Suspect]
     Indication: ASSISTED FERTILISATION
  3. GONADOTROPIN, CHORIONIC [Suspect]
     Indication: IN VITRO FERTILISATION
     Dosage: UNK , UNK
  4. GONADOTROPIN, CHORIONIC [Suspect]
     Indication: ASSISTED FERTILISATION
  5. PROGESTERONE [Suspect]
     Indication: IN VITRO FERTILISATION
     Dosage: UNK
  6. PROGESTERONE [Suspect]
     Indication: ASSISTED FERTILISATION
  7. CRINONE [Concomitant]
  8. PROGYNOVA [Concomitant]
  9. SUPREFACT [Concomitant]
     Dosage: 0.5 MG, UNK
     Route: 058
  10. LUCRIN [Concomitant]

REACTIONS (1)
  - Maternal exposure during pregnancy [Unknown]
